FAERS Safety Report 25009637 (Version 2)
Quarter: 2025Q1

REPORT INFORMATION
  Report Type: Spontaneous
  Country: US (occurrence: US)
  Receive Date: 20250225
  Receipt Date: 20250306
  Transmission Date: 20250409
  Serious: No
  Sender: PURDUE
  Company Number: US-PURDUE PHARMA-USA-2025-0315645

PATIENT

DRUGS (2)
  1. OXYCONTIN [Suspect]
     Active Substance: OXYCODONE HYDROCHLORIDE
     Indication: Pain
     Dosage: 10 MG EVERY 8 HOURS
     Route: 048
     Dates: start: 20250218
  2. MORPHINE SULFATE [Suspect]
     Active Substance: MORPHINE SULFATE
     Indication: Pain
     Dosage: 15 MG ER EVERY 8 HOURS
     Route: 048
     Dates: start: 2020, end: 20250210

REACTIONS (8)
  - Pain [Unknown]
  - Illness [Unknown]
  - Impaired quality of life [Unknown]
  - Insomnia [Unknown]
  - Nausea [Unknown]
  - Inadequate analgesia [Unknown]
  - Therapy interrupted [Unknown]
  - Product availability issue [Unknown]

NARRATIVE: CASE EVENT DATE: 20250210
